FAERS Safety Report 5792294-5 (Version None)
Quarter: 2008Q2

REPORT INFORMATION
  Report Type: 
  Country: None (occurrence: None)
  Receive Date: 20080626
  Receipt Date: 20080401
  Transmission Date: 20081010
  Serious: No
  Sender: FDA-Public Use
  Company Number: US-ASTRAZENECA-2008UW06490

PATIENT
  Age: 71 Year
  Sex: Female

DRUGS (6)
  1. PULMICORT FLEXHALER [Suspect]
     Indication: ASTHMA
     Dosage: 2 PUFFS, BID
     Route: 055
     Dates: start: 20080301
  2. SINGULAIR [Concomitant]
  3. ASPIRIN [Concomitant]
  4. RAMIPRIL [Concomitant]
  5. TRIAMTERENE [Concomitant]
  6. LIPITOR [Concomitant]

REACTIONS (2)
  - DEPRESSION [None]
  - HEART RATE INCREASED [None]
